FAERS Safety Report 9500567 (Version 1)
Quarter: 2013Q3

REPORT INFORMATION
  Report Type: Spontaneous
  Country: US (occurrence: None)
  Receive Date: 20130903
  Receipt Date: 20130903
  Transmission Date: 20140515
  Serious: Yes (Death)
  Sender: FDA-Public Use
  Company Number: 2013US002348

PATIENT
  Age: 60 Year
  Sex: Female
  Weight: 57 kg

DRUGS (1)
  1. PONATINIB [Suspect]
     Indication: ACUTE LYMPHOCYTIC LEUKAEMIA
     Route: 048
     Dates: end: 2013

REACTIONS (14)
  - General symptom [None]
  - Pericarditis [None]
  - Atelectasis [None]
  - Anaemia [None]
  - Thrombocytopenia [None]
  - Pneumonia [None]
  - Death [None]
  - Colitis ulcerative [None]
  - Condition aggravated [None]
  - Gastrointestinal haemorrhage [None]
  - Renal failure acute [None]
  - Pleural effusion [None]
  - Hypotension [None]
  - Sinus tachycardia [None]
